FAERS Safety Report 19501617 (Version 5)
Quarter: 2021Q3

REPORT INFORMATION
  Report Type: Report from Study
  Country: US (occurrence: US)
  Receive Date: 20210707
  Receipt Date: 20210920
  Transmission Date: 20211014
  Serious: Yes (Other)
  Sender: FDA-Public Use
  Company Number: US-INSMED, INC.-2021-08860-US

PATIENT
  Age: 69 Year
  Sex: Male

DRUGS (3)
  1. ARIKAYCE [Suspect]
     Active Substance: AMIKACIN
     Dosage: 590 MILLIGRAM, TIW
     Route: 055
     Dates: start: 202106, end: 2021
  2. ARIKAYCE [Suspect]
     Active Substance: AMIKACIN
     Indication: MYCOBACTERIUM AVIUM COMPLEX INFECTION
     Dosage: 590 MILLIGRAM, QD
     Route: 055
     Dates: start: 20210625, end: 202106
  3. ARIKAYCE [Suspect]
     Active Substance: AMIKACIN
     Dosage: 590 MILLIGRAM, QD
     Route: 055
     Dates: start: 2021, end: 2021

REACTIONS (12)
  - Cough [Unknown]
  - Dyspnoea [Unknown]
  - Unevaluable event [Unknown]
  - Product closure issue [Unknown]
  - Weight decreased [Unknown]
  - Malaise [Unknown]
  - Feeling jittery [Unknown]
  - Off label use [Unknown]
  - Product dose omission issue [Unknown]
  - Feeding disorder [Unknown]
  - Adverse drug reaction [Unknown]
  - Tremor [Recovered/Resolved]

NARRATIVE: CASE EVENT DATE: 2021
